FAERS Safety Report 8080286-5 (Version None)
Quarter: 2012Q1

REPORT INFORMATION
  Report Type: 
  Country: None (occurrence: None)
  Receive Date: 20120130
  Receipt Date: 20120125
  Transmission Date: 20120608
  Serious: Yes (Hospitalization)
  Sender: FDA-Public Use
  Company Number: US-JNJFOC-20120111031

PATIENT
  Sex: Male

DRUGS (10)
  1. FLOMAX [Concomitant]
     Indication: NEURALGIA
     Route: 048
     Dates: start: 20090101
  2. ASPIRIN [Concomitant]
     Indication: CARDIAC DISORDER
     Route: 048
     Dates: start: 20110822
  3. ABIRATERONE ACETATE [Suspect]
     Route: 048
  4. CARAFATE [Concomitant]
     Indication: GASTROOESOPHAGEAL REFLUX DISEASE
     Dosage: 1 TABLESPOON BEFORE MEALS AND AT HOUR OF SLEEP
     Route: 048
     Dates: start: 20110921
  5. HYDROCHLOROTHIAZIDE [Concomitant]
     Route: 065
  6. ABIRATERONE ACETATE [Suspect]
     Indication: PROSTATE CANCER
     Route: 048
     Dates: start: 20120111
  7. DASATINIB [Suspect]
     Indication: PROSTATE CANCER
     Route: 048
     Dates: start: 20120111
  8. COLACE [Concomitant]
     Indication: CONSTIPATION
     Route: 048
     Dates: start: 20090101
  9. ADVAIR DISKUS 100/50 [Concomitant]
     Indication: SEASONAL ALLERGY
     Dosage: DOSE: 250/50MG
     Route: 055
     Dates: start: 20090101
  10. ATENOLOL [Concomitant]
     Indication: HYPERTENSION
     Route: 048
     Dates: start: 20090101

REACTIONS (1)
  - PNEUMONITIS [None]
